FAERS Safety Report 4743028-4 (Version None)
Quarter: 2005Q3

REPORT INFORMATION
  Report Type: 
  Country: None (occurrence: None)
  Receive Date: 20050811
  Receipt Date: 20050728
  Transmission Date: 20060218
  Serious: Yes (Hospitalization, Disabling, Other)
  Sender: FDA-Public Use
  Company Number: USA-2004-0016540

PATIENT
  Age: 30 Year
  Sex: Male

DRUGS (5)
  1. OXYCONTIN [Suspect]
     Indication: PAIN
     Dosage: 20 MG, Q12H,
     Dates: start: 20011204
  2. XANAX [Concomitant]
  3. PEPCID [Concomitant]
  4. PAXIL [Concomitant]
  5. LOTRISONE [Concomitant]

REACTIONS (31)
  - ALEXIA [None]
  - ANOXIC ENCEPHALOPATHY [None]
  - ANXIETY [None]
  - BLINDNESS [None]
  - BLUNTED AFFECT [None]
  - COGNITIVE DISORDER [None]
  - COMA [None]
  - COORDINATION ABNORMAL [None]
  - DRUG DEPENDENCE [None]
  - EMOTIONAL DISTRESS [None]
  - EYE MOVEMENT DISORDER [None]
  - GAIT DISTURBANCE [None]
  - HEMIPARESIS [None]
  - HYPOACUSIS [None]
  - INADEQUATE ANALGESIA [None]
  - INJURY [None]
  - MENTAL IMPAIRMENT [None]
  - OVERDOSE [None]
  - PAIN [None]
  - PNEUMONIA ASPIRATION [None]
  - PYREXIA [None]
  - READING DISORDER [None]
  - RENAL FAILURE [None]
  - RESPIRATORY FAILURE [None]
  - SCAR [None]
  - SEPSIS [None]
  - SINUS TACHYCARDIA [None]
  - SUICIDE ATTEMPT [None]
  - VISION BLURRED [None]
  - VISUAL ACUITY REDUCED [None]
  - VISUAL FIELD DEFECT [None]
